FAERS Safety Report 5671405-6 (Version None)
Quarter: 2008Q1

REPORT INFORMATION
  Report Type: 
  Country: None (occurrence: None)
  Receive Date: 20080313
  Receipt Date: 20080228
  Transmission Date: 20080703
  Serious: Yes (Life-Threatening, Hospitalization)
  Sender: FDA-Public Use
  Company Number: S08-FRA-00669-01

PATIENT
  Age: 83 Year
  Sex: Female

DRUGS (3)
  1. ESCITALOPRAM [Suspect]
     Indication: MAJOR DEPRESSION
     Dosage: 5 MG QD PO
     Route: 048
     Dates: start: 20071117, end: 20080115
  2. ATARAX [Suspect]
     Dosage: 25 MG PRN PO
     Route: 048
  3. LORAZEPAM [Suspect]

REACTIONS (4)
  - CEREBRAL HAEMORRHAGE [None]
  - COMA [None]
  - DRUG TOXICITY [None]
  - SUICIDE ATTEMPT [None]
